FAERS Safety Report 20064700 (Version 2)
Quarter: 2021Q4

REPORT INFORMATION
  Report Type: Spontaneous
  Country: US (occurrence: US)
  Receive Date: 20211112
  Receipt Date: 20211130
  Transmission Date: 20220303
  Serious: No
  Sender: FDA-Public Use
  Company Number: US-INSUD PHARMA-2110US02538

PATIENT

DRUGS (1)
  1. CLOBETASOL [Suspect]
     Active Substance: CLOBETASOL
     Indication: Rash
     Dosage: TWICE DAILY FOR UP TO TWO WEEKS
     Route: 061
     Dates: start: 202110, end: 202111

REACTIONS (5)
  - Sticky skin [Recovered/Resolved]
  - Application site reaction [Recovered/Resolved]
  - Product residue present [Recovered/Resolved]
  - Poor quality product administered [Unknown]
  - Product physical consistency issue [Unknown]

NARRATIVE: CASE EVENT DATE: 20211001
